FAERS Safety Report 5343704-9 (Version None)
Quarter: 2007Q2

REPORT INFORMATION
  Report Type: 
  Country: None (occurrence: None)
  Receive Date: 20070604
  Receipt Date: 20070515
  Transmission Date: 20071010
  Serious: No
  Sender: FDA-Public Use
  Company Number: US-JNJFOC-20070504203

PATIENT
  Age: 50 Year
  Sex: Female
  Weight: 54.89 kg

DRUGS (3)
  1. INVEGA [Suspect]
     Indication: ANXIETY
     Route: 048
  2. PREVACID [Concomitant]
     Indication: GASTROOESOPHAGEAL REFLUX DISEASE
     Route: 048
  3. LOPRESSOR [Concomitant]
     Indication: HEART RATE INCREASED
     Route: 048

REACTIONS (3)
  - DYSKINESIA [None]
  - PARAESTHESIA [None]
  - SPEECH DISORDER [None]
